FAERS Safety Report 25184543 (Version 1)
Quarter: 2025Q2

REPORT INFORMATION
  Report Type: Report from Study
  Country: US (occurrence: US)
  Receive Date: 20250410
  Receipt Date: 20250410
  Transmission Date: 20250716
  Serious: No
  Sender: AGIOS PHARMACEUTICALS
  Company Number: US-AGIOS-2503US04212

PATIENT
  Age: 53 Year
  Sex: Female

DRUGS (1)
  1. MITAPIVAT [Suspect]
     Active Substance: MITAPIVAT
     Indication: Pyruvate kinase deficiency anaemia
     Route: 065

REACTIONS (4)
  - Fatigue [Unknown]
  - Blood bilirubin decreased [Unknown]
  - Haemoglobin decreased [Unknown]
  - Drug effect less than expected [Unknown]
